FAERS Safety Report 12646502 (Version 2)
Quarter: 2016Q4

REPORT INFORMATION
  Report Type: Spontaneous
  Country: US (occurrence: US)
  Receive Date: 20160812
  Receipt Date: 20161215
  Transmission Date: 20170207
  Serious: No
  Sender: FDA-Public Use
  Company Number: US-009507513-1608USA004623

PATIENT
  Age: 40 Year
  Sex: Female
  Weight: 82.54 kg

DRUGS (4)
  1. IRON (UNSPECIFIED) [Concomitant]
     Active Substance: IRON
  2. FAMOTIDINE. [Concomitant]
     Active Substance: FAMOTIDINE
  3. NEXPLANON [Suspect]
     Active Substance: ETONOGESTREL
     Indication: MENSTRUAL CYCLE MANAGEMENT
     Dosage: UNK
     Route: 023
     Dates: start: 20160129, end: 20161006
  4. GABAPENTIN. [Concomitant]
     Active Substance: GABAPENTIN

REACTIONS (2)
  - Product use issue [Unknown]
  - Vaginal haemorrhage [Not Recovered/Not Resolved]

NARRATIVE: CASE EVENT DATE: 20160129
